FAERS Safety Report 8155366-6 (Version None)
Quarter: 2012Q1

REPORT INFORMATION
  Report Type: 
  Country: None (occurrence: None)
  Receive Date: 20120222
  Receipt Date: 20120216
  Transmission Date: 20120608
  Serious: No
  Sender: FDA-Public Use
  Company Number: US-BIOGENIDEC-2012BI006193

PATIENT
  Age: 39 Year
  Sex: Female

DRUGS (3)
  1. MEDICATIONS (NOS) [Concomitant]
     Indication: ANXIETY
  2. MEDICATIONS (NOS) [Concomitant]
     Indication: DEPRESSION
  3. TYSABRI [Suspect]
     Indication: MULTIPLE SCLEROSIS
     Route: 042
     Dates: start: 20120116

REACTIONS (3)
  - LOSS OF CONSCIOUSNESS [None]
  - NAUSEA [None]
  - DEPRESSED MOOD [None]
